FAERS Safety Report 4915917-9 (Version None)
Quarter: 2006Q1

REPORT INFORMATION
  Report Type: 
  Country: None (occurrence: None)
  Receive Date: 20060214
  Receipt Date: 20051119
  Transmission Date: 20060701
  Serious: Yes (Other)
  Sender: FDA-Public Use
  Company Number: 8614

PATIENT
  Age: 40 Year
  Sex: Female

DRUGS (2)
  1. SEPTOCAINE [Suspect]
     Indication: LOCAL ANAESTHESIA
     Dosage: 1/2 CARPULE INJECTED
  2. BENZOCAINE 20% [Suspect]
     Indication: ANAESTHESIA
     Dosage: TOPICAL
     Route: 061

REACTIONS (1)
  - PARAESTHESIA ORAL [None]
